FAERS Safety Report 8224770-X (Version None)
Quarter: 2012Q1

REPORT INFORMATION
  Report Type: 
  Country: None (occurrence: None)
  Receive Date: 20120321
  Receipt Date: 20120314
  Transmission Date: 20120608
  Serious: Yes (Hospitalization)
  Sender: FDA-Public Use
  Company Number: JP-EISAI INC-E7389-02116-CLI-JP

PATIENT
  Sex: Female
  Weight: 41 kg

DRUGS (9)
  1. TRANDOLAPRIL [Concomitant]
     Route: 048
  2. HALAVEN [Suspect]
     Indication: METASTASES TO BONE
     Route: 041
     Dates: start: 20110922
  3. DECADRON [Concomitant]
     Indication: PROPHYLAXIS
     Route: 041
  4. VERAPAMIL HCL [Concomitant]
     Route: 048
  5. HALAVEN [Suspect]
     Indication: METASTASES TO UTERUS
  6. RABEPRAZOLE SODIUM [Concomitant]
     Indication: PROPHYLAXIS
     Route: 048
  7. HALAVEN [Suspect]
     Indication: BREAST CANCER RECURRENT
     Route: 041
     Dates: start: 20110823, end: 20110913
  8. ASPIRIN [Concomitant]
     Route: 048
  9. BISOPROLOL FUMARATE [Concomitant]
     Indication: PROPHYLAXIS
     Route: 048

REACTIONS (2)
  - SUPRAVENTRICULAR TACHYCARDIA [None]
  - INTERSTITIAL LUNG DISEASE [None]
